FAERS Safety Report 6896691-6 (Version None)
Quarter: 2010Q3

REPORT INFORMATION
  Report Type: 
  Country: None (occurrence: None)
  Receive Date: 20100802
  Receipt Date: 20070205
  Transmission Date: 20110219
  Serious: No
  Sender: FDA-Public Use
  Company Number: US-PFIZER INC-2006152565

PATIENT
  Sex: Male
  Weight: 81.65 kg

DRUGS (7)
  1. LYRICA [Suspect]
     Indication: PERONEAL NERVE INJURY
     Route: 048
     Dates: start: 20060824, end: 20061215
  2. VALSARTAN [Concomitant]
  3. ACIPHEX [Concomitant]
  4. ASPIRIN [Concomitant]
  5. LIPITOR [Concomitant]
  6. TRICOR [Concomitant]
  7. NIASPAN [Concomitant]

REACTIONS (1)
  - ERECTILE DYSFUNCTION [None]
